FAERS Safety Report 26188377 (Version 1)
Quarter: 2025Q4

REPORT INFORMATION
  Report Type: Spontaneous
  Country: US (occurrence: US)
  Receive Date: 20251222
  Receipt Date: 20251222
  Transmission Date: 20260118
  Serious: No
  Sender: LUNDBECK
  Company Number: US-LUNDBECK-DKLU4022523

PATIENT
  Sex: Female

DRUGS (3)
  1. VYEPTI [Suspect]
     Active Substance: EPTINEZUMAB-JJMR
     Indication: Migraine
     Dosage: 300 MILLIGRAM
     Route: 041
     Dates: start: 20251125
  2. AIMOVIG [Concomitant]
     Active Substance: ERENUMAB-AOOE
     Indication: Product used for unknown indication
  3. ACRIVASTINE [Concomitant]
     Active Substance: ACRIVASTINE
     Indication: Product used for unknown indication
     Dosage: 25 MILLIGRAM

REACTIONS (7)
  - Restlessness [Recovered/Resolved]
  - Agitation [Recovered/Resolved]
  - Pruritus [Unknown]
  - Eye pruritus [Unknown]
  - Lacrimation increased [Unknown]
  - Throat irritation [Unknown]
  - Nausea [Unknown]

NARRATIVE: CASE EVENT DATE: 20251125
